FAERS Safety Report 17367841 (Version 1)
Quarter: 2020Q1

REPORT INFORMATION
  Report Type: Spontaneous
  Country: US (occurrence: US)
  Receive Date: 20200204
  Receipt Date: 20200204
  Transmission Date: 20200409
  Serious: No
  Sender: FDA-Public Use
  Company Number: US-PERRIGO-19US014309

PATIENT
  Sex: Female

DRUGS (4)
  1. ESTRADIOL. [Suspect]
     Active Substance: ESTRADIOL
     Indication: VULVOVAGINAL DRYNESS
     Dosage: 0.1 MG, EVERY 10 DAYS
     Route: 067
     Dates: start: 201911, end: 201911
  2. ESTRADIOL. [Suspect]
     Active Substance: ESTRADIOL
     Indication: VULVOVAGINAL DISCOMFORT
     Dosage: 0.1 MG, EVERY 10 DAYS
     Route: 067
     Dates: start: 2018, end: 201911
  3. ESTRADIOL. [Suspect]
     Active Substance: ESTRADIOL
     Dosage: 0.1 MG, QOD
     Route: 067
     Dates: start: 201911, end: 201911
  4. ESTRADIOL. [Suspect]
     Active Substance: ESTRADIOL
     Dosage: 0.1 MG, EVERY 10 DAYS
     Route: 067
     Dates: start: 201911

REACTIONS (4)
  - Vulvovaginal pain [Recovered/Resolved]
  - Underdose [Unknown]
  - Inappropriate schedule of product administration [Unknown]
  - Therapeutic product effect decreased [Unknown]

NARRATIVE: CASE EVENT DATE: 2018
